FAERS Safety Report 5573013-4 (Version None)
Quarter: 2007Q4

REPORT INFORMATION
  Report Type: 
  Country: None (occurrence: None)
  Receive Date: 20071220
  Receipt Date: 20071030
  Transmission Date: 20080405
  Serious: Yes (Life-Threatening)
  Sender: FDA-Public Use
  Company Number: 529#5#2007-00001

PATIENT
  Age: 56 Year
  Sex: Female

DRUGS (23)
  1. NEUPRO [Suspect]
     Indication: PARKINSON'S DISEASE
     Dosage: 16 MG/24H (16 MG/24H 1 IN 1 DAY (S)) TRANSDERMAL
     Route: 062
     Dates: start: 20071028, end: 20071030
  2. PRAMIPEXOLE DIHYDROCHLORIDE (PRAMIPEXOLE DIHYDROCHLORIDE) [Concomitant]
  3. ENTACAPONE, CARBIDOPA, LEVODOPA [Concomitant]
  4. CARBIDOPA, LEVODOPA (CARBIDOPA, LEVODOPA) [Concomitant]
  5. ESCITALOPRAM [Concomitant]
  6. ESOMEPRAZOLE MAGNESIUM [Concomitant]
  7. PIRITRAMIDE (PIRITRAMIDE) [Concomitant]
  8. CEFAZOLIN SODIUM [Concomitant]
  9. ENOXAPARIN SODIUM [Concomitant]
  10. DIPYRONE TAB [Concomitant]
  11. ENTACAPONE, CARBIDOPA, LEVODOPA [Concomitant]
  12. PANTOPRAZOLE SODIUM [Concomitant]
  13. MIDAZOLAM HYDROCHLORIDE (MIDAZOLAM MALEATE) [Concomitant]
  14. SEVOFLURANE [Concomitant]
  15. ROCURONIUM (ROCURONIUM) [Concomitant]
  16. ANTIBIOTICS [Concomitant]
  17. VASOPROTECTIVES [Concomitant]
  18. FENTANYL [Concomitant]
  19. CEFAZOLIN [Concomitant]
  20. ATRACURIUM BESYLATE [Concomitant]
  21. PROPOFOL [Concomitant]
  22. THEODRENALINE HYDROCHLORIDE, CAFEDRINE HYDROCHLORIDE (CAFEDRINE HYDROC [Concomitant]
  23. NOREPINEPHRINE BITARTRATE [Concomitant]

REACTIONS (6)
  - CARDIAC ARREST [None]
  - CENTRAL VENOUS PRESSURE DECREASED [None]
  - GENERAL PHYSICAL HEALTH DETERIORATION [None]
  - HAEMOGLOBIN DECREASED [None]
  - HYPOTENSION [None]
  - LOSS OF CONSCIOUSNESS [None]
